FAERS Safety Report 13619050 (Version 1)
Quarter: 2017Q2

REPORT INFORMATION
  Report Type: Spontaneous
  Country: US (occurrence: US)
  Receive Date: 20170606
  Receipt Date: 20170606
  Transmission Date: 20170830
  Serious: No
  Sender: FDA-Public Use
  Company Number: US-AMGEN-USASP2016086570

PATIENT
  Age: 65 Year
  Sex: Male

DRUGS (1)
  1. EPOGEN [Suspect]
     Active Substance: ERYTHROPOIETIN
     Indication: NEPHROGENIC ANAEMIA
     Dosage: UNK UNK, UNK
     Route: 065
     Dates: start: 201002

REACTIONS (4)
  - Rash [Unknown]
  - Gout [Unknown]
  - Haemoglobin decreased [Unknown]
  - Rash erythematous [Unknown]
